FAERS Safety Report 16024547 (Version 6)
Quarter: 2019Q2

REPORT INFORMATION
  Report Type: Spontaneous
  Country: GB (occurrence: GB)
  Receive Date: 20190301
  Receipt Date: 20190510
  Transmission Date: 20190711
  Serious: Yes (Hospitalization, Disabling, Other)
  Sender: FDA-Public Use
  Company Number: GB-JNJFOC-20190241137

PATIENT
  Age: 54 Year
  Sex: Male

DRUGS (2)
  1. STELARA [Suspect]
     Active Substance: USTEKINUMAB
     Indication: PSORIASIS
     Route: 058
     Dates: start: 201703, end: 20190222
  2. STELARA [Suspect]
     Active Substance: USTEKINUMAB
     Indication: PARAPSORIASIS
     Route: 058
     Dates: start: 201703, end: 20190222

REACTIONS (7)
  - Antiphospholipid antibodies positive [Unknown]
  - Cerebral infarction [Not Recovered/Not Resolved]
  - Speech disorder [Recovered/Resolved]
  - Splenic infarction [Not Recovered/Not Resolved]
  - Hemiparesis [Not Recovered/Not Resolved]
  - Endocarditis [Unknown]
  - Renal infarct [Not Recovered/Not Resolved]

NARRATIVE: CASE EVENT DATE: 20190225
